FAERS Safety Report 6397538-7 (Version None)
Quarter: 2009Q4

REPORT INFORMATION
  Report Type: 
  Country: None (occurrence: None)
  Receive Date: 20091007
  Receipt Date: 20090930
  Transmission Date: 20100525
  Serious: Yes (Hospitalization)
  Sender: FDA-Public Use
  Company Number: JHP200900307

PATIENT
  Age: 24 Year
  Sex: Female

DRUGS (1)
  1. PITOCIN [Suspect]
     Indication: VAGINAL HAEMORRHAGE
     Dosage: 3 UNITS, INTRAVENOUS
     Route: 042

REACTIONS (8)
  - BLOOD PRESSURE INCREASED [None]
  - CYANOSIS [None]
  - EXTRAVASATION [None]
  - HEART RATE INCREASED [None]
  - ISCHAEMIA [None]
  - PERIPHERAL COLDNESS [None]
  - PULSE ABSENT [None]
  - SKIN DISCOLOURATION [None]
